FAERS Safety Report 17444902 (Version 1)
Quarter: 2020Q1

REPORT INFORMATION
  Report Type: Report from Study
  Country: DE (occurrence: DE)
  Receive Date: 20200221
  Receipt Date: 20200221
  Transmission Date: 20200409
  Serious: Yes (Hospitalization)
  Sender: FDA-Public Use
  Company Number: DE-TEVA-2020-DE-1189846

PATIENT
  Age: 39 Year
  Sex: Male
  Weight: 70 kg

DRUGS (5)
  1. MYCOPHENOLATE MOFETIL. [Suspect]
     Active Substance: MYCOPHENOLATE MOFETIL
     Route: 048
     Dates: start: 19991001, end: 19991122
  2. MYCOPHENOLATE MOFETIL. [Suspect]
     Active Substance: MYCOPHENOLATE MOFETIL
     Route: 048
     Dates: start: 199911, end: 200001
  3. PROGRAF [Concomitant]
     Active Substance: TACROLIMUS
     Route: 065
     Dates: start: 19991001
  4. MYCOPHENOLATE MOFETIL. [Suspect]
     Active Substance: MYCOPHENOLATE MOFETIL
     Indication: PROPHYLAXIS AGAINST TRANSPLANT REJECTION
     Route: 048
     Dates: start: 200001, end: 200005
  5. CORTISON [Concomitant]
     Active Substance: CORTISONE ACETATE
     Route: 065
     Dates: start: 19991001

REACTIONS (2)
  - Urinary bladder haemorrhage [Recovered/Resolved]
  - Cystitis haemorrhagic [Recovered/Resolved]

NARRATIVE: CASE EVENT DATE: 199910
